FAERS Safety Report 23244888 (Version 1)
Quarter: 2023Q4

REPORT INFORMATION
  Report Type: Spontaneous
  Country: CN (occurrence: CN)
  Receive Date: 20231130
  Receipt Date: 20231130
  Transmission Date: 20240109
  Serious: Yes (Disabling)
  Sender: FDA-Public Use
  Company Number: CN-002147023-NVSC2023CN252342

PATIENT
  Age: 74 Year
  Sex: Female
  Weight: 75 kg

DRUGS (32)
  1. AMLODIPINE\VALSARTAN [Suspect]
     Active Substance: AMLODIPINE\VALSARTAN
     Indication: Brain contusion
     Dosage: 1 DOSAGE FORM, QD (NASAL FEEDING)
     Route: 065
     Dates: start: 20230926, end: 20231001
  2. AMLODIPINE\VALSARTAN [Suspect]
     Active Substance: AMLODIPINE\VALSARTAN
     Indication: Cerebral haematoma
  3. AMLODIPINE\VALSARTAN [Suspect]
     Active Substance: AMLODIPINE\VALSARTAN
     Indication: Hypertension
  4. PIRACETAM [Suspect]
     Active Substance: PIRACETAM
     Indication: Brain contusion
     Dosage: 20 ML, QD
     Route: 041
     Dates: start: 20230921, end: 20231001
  5. PIRACETAM [Suspect]
     Active Substance: PIRACETAM
     Indication: Cerebral haematoma
  6. PIRACETAM [Suspect]
     Active Substance: PIRACETAM
     Indication: Cerebral disorder
  7. FLUCONAZOLE [Suspect]
     Active Substance: FLUCONAZOLE
     Indication: Brain contusion
     Dosage: 200 ML, QD
     Route: 041
     Dates: start: 20230928, end: 20231001
  8. FLUCONAZOLE [Suspect]
     Active Substance: FLUCONAZOLE
     Indication: Cerebral haematoma
  9. FLUCONAZOLE [Suspect]
     Active Substance: FLUCONAZOLE
     Indication: Fungal infection
  10. SULPERAZONE [Suspect]
     Active Substance: CEFOPERAZONE SODIUM\SULBACTAM SODIUM
     Indication: Brain contusion
     Dosage: 2 G, TID
     Route: 041
     Dates: start: 20230922, end: 20231003
  11. SULPERAZONE [Suspect]
     Active Substance: CEFOPERAZONE SODIUM\SULBACTAM SODIUM
     Indication: Cerebral haematoma
     Dosage: 2 G, Q12H
     Route: 041
  12. SULPERAZONE [Suspect]
     Active Substance: CEFOPERAZONE SODIUM\SULBACTAM SODIUM
     Indication: Infection
  13. LIPITOR [Suspect]
     Active Substance: ATORVASTATIN CALCIUM
     Indication: Brain contusion
     Dosage: 20 MG, QD (NASAL FEEDING)
     Route: 065
     Dates: start: 20230927, end: 20231001
  14. LIPITOR [Suspect]
     Active Substance: ATORVASTATIN CALCIUM
     Indication: Cerebral haematoma
  15. LIPITOR [Suspect]
     Active Substance: ATORVASTATIN CALCIUM
     Indication: Hyperlipidaemia
  16. NEXIUM [Concomitant]
     Active Substance: ESOMEPRAZOLE MAGNESIUM
     Indication: Brain contusion
     Dosage: 40 MG, QD
     Route: 041
     Dates: start: 20230921, end: 20230926
  17. NEXIUM [Concomitant]
     Active Substance: ESOMEPRAZOLE MAGNESIUM
     Indication: Cerebral haematoma
  18. NEXIUM [Concomitant]
     Active Substance: ESOMEPRAZOLE MAGNESIUM
     Indication: Gastrointestinal disorder
  19. MANNITOL [Concomitant]
     Active Substance: MANNITOL
     Indication: Brain contusion
     Dosage: 150 ML, BID
     Route: 041
     Dates: start: 20230921, end: 20230927
  20. MANNITOL [Concomitant]
     Active Substance: MANNITOL
     Indication: Cerebral haematoma
  21. MANNITOL [Concomitant]
     Active Substance: MANNITOL
     Indication: Reduction of increased intracranial pressure
  22. URAPIDIL [Concomitant]
     Active Substance: URAPIDIL
     Indication: Brain contusion
     Dosage: 20 ML, QD (PUMP INJECTION)
     Route: 065
     Dates: start: 20230924, end: 20231001
  23. URAPIDIL [Concomitant]
     Active Substance: URAPIDIL
     Indication: Cerebral haematoma
  24. URAPIDIL [Concomitant]
     Active Substance: URAPIDIL
     Indication: Hypertension
  25. BROMHEXINE [Concomitant]
     Active Substance: BROMHEXINE
     Indication: Brain contusion
     Dosage: 4 MG, BID
     Route: 041
     Dates: start: 20230921, end: 20231006
  26. BROMHEXINE [Concomitant]
     Active Substance: BROMHEXINE
     Indication: Cerebral haematoma
  27. BROMHEXINE [Concomitant]
     Active Substance: BROMHEXINE
     Indication: Sedation
  28. BROMHEXINE [Concomitant]
     Active Substance: BROMHEXINE
     Indication: Productive cough
  29. LOTENSIN [Concomitant]
     Active Substance: BENAZEPRIL HYDROCHLORIDE
     Indication: Brain contusion
     Dosage: 10 MG, QD (NASAL FEEDING)
     Route: 065
     Dates: start: 20230924
  30. LOTENSIN [Concomitant]
     Active Substance: BENAZEPRIL HYDROCHLORIDE
     Indication: Cerebral haematoma
     Dosage: 10 MG, QD (NASAL FEEDING)
     Route: 065
     Dates: start: 20230925, end: 20231001
  31. LOTENSIN [Concomitant]
     Active Substance: BENAZEPRIL HYDROCHLORIDE
     Indication: Hypertension
  32. MEROPENEM [Concomitant]
     Active Substance: MEROPENEM
     Indication: Anti-infective therapy
     Dosage: 1 G, Q8H
     Route: 041
     Dates: start: 20231004, end: 20231010

REACTIONS (1)
  - Hepatic function abnormal [Recovering/Resolving]

NARRATIVE: CASE EVENT DATE: 20230928
